FAERS Safety Report 4965643-5 (Version None)
Quarter: 2006Q1

REPORT INFORMATION
  Report Type: 
  Country: None (occurrence: None)
  Receive Date: 20060201
  Receipt Date: 20051011
  Transmission Date: 20060701
  Serious: No
  Sender: FDA-Public Use
  Company Number: 2005PV003156

PATIENT
  Age: 56 Year
  Sex: Female
  Weight: 146.0582 kg

DRUGS (6)
  1. BYETTA [Suspect]
     Indication: DIABETES MELLITUS NON-INSULIN-DEPENDENT
     Dosage: 5 MCG; BID; SC; SEE IMAGE
     Route: 058
     Dates: start: 20050912, end: 20051003
  2. BYETTA [Suspect]
     Indication: DIABETES MELLITUS NON-INSULIN-DEPENDENT
     Dosage: 5 MCG; BID; SC; SEE IMAGE
     Route: 058
     Dates: start: 20051004, end: 20051010
  3. BYETTA [Suspect]
     Indication: DIABETES MELLITUS NON-INSULIN-DEPENDENT
     Dosage: 5 MCG; BID; SC; SEE IMAGE
     Route: 058
     Dates: start: 20051011
  4. ACTOS [Concomitant]
  5. GLUCOPHAGE [Concomitant]
  6. LANTUS [Concomitant]

REACTIONS (5)
  - DECREASED APPETITE [None]
  - DIZZINESS [None]
  - DYSPEPSIA [None]
  - NAUSEA [None]
  - WEIGHT DECREASED [None]
